FAERS Safety Report 4764042-9 (Version None)
Quarter: 2005Q3

REPORT INFORMATION
  Report Type: 
  Country: None (occurrence: None)
  Receive Date: 20050906
  Receipt Date: 20050826
  Transmission Date: 20060218
  Serious: Yes (Hospitalization)
  Sender: FDA-Public Use
  Company Number: 2005120767

PATIENT
  Age: 53 Year
  Sex: Female

DRUGS (3)
  1. BEXTRA [Suspect]
     Indication: ARTHRITIS
     Dosage: 10 MG (20 MG, 1 IN 1 D), ORAL
     Route: 048
     Dates: start: 20040101, end: 20050401
  2. POTASSIUM (POTASSIUM) [Concomitant]
  3. THYROID TAB [Concomitant]

REACTIONS (9)
  - ASTHMA [None]
  - BLOOD POTASSIUM DECREASED [None]
  - DYSPNOEA [None]
  - HYPOVENTILATION [None]
  - RASH PAPULAR [None]
  - SENSORY DISTURBANCE [None]
  - UTERINE PROLAPSE [None]
  - VAGINAL DISORDER [None]
  - VAGINAL PROLAPSE [None]
